FAERS Safety Report 8640906 (Version 3)
Quarter: 2012Q4

REPORT INFORMATION
  Report Type: 
  Country: US (occurrence: US)
  Receive Date: 20120628
  Receipt Date: 20120921
  Transmission Date: 20130627
  Serious: Yes (Hospitalization)
  Sender: FDA-Public Use
  Company Number: US-BRISTOL-MYERS SQUIBB COMPANY-16481921

PATIENT
  Age: 64 Year
  Sex: Female
  Weight: 74 kg

DRUGS (3)
  1. ORENCIA [Suspect]
     Indication: RHEUMATOID ARTHRITIS
     Dosage: last infusion on 26Mar12,18May12,at least 3 months
     Route: 042
     Dates: start: 20120326
  2. METHOTREXATE [Suspect]
     Dosage: Incd 0.9 to 0.6
  3. FOLIC ACID [Concomitant]

REACTIONS (20)
  - Shoulder arthroplasty [Unknown]
  - Neck surgery [Unknown]
  - Dyspnoea [Unknown]
  - Blood folate decreased [Unknown]
  - Malaise [Unknown]
  - Full blood count decreased [Unknown]
  - Influenza like illness [Unknown]
  - Dry skin [Unknown]
  - Asthenia [Unknown]
  - Headache [Unknown]
  - Pyrexia [Unknown]
  - Arthralgia [Unknown]
  - Bone pain [Unknown]
  - Rheumatoid arthritis [Recovered/Resolved]
  - Oropharyngeal pain [Unknown]
  - Dry eye [Unknown]
  - Gastric hypertonia [Unknown]
  - Constipation [Unknown]
  - Nausea [Unknown]
  - Retching [Unknown]
